FAERS Safety Report 6552426-8 (Version None)
Quarter: 2010Q1

REPORT INFORMATION
  Report Type: 
  Country: None (occurrence: None)
  Receive Date: 20100126
  Receipt Date: 20100115
  Transmission Date: 20100710
  Serious: Yes (Death)
  Sender: FDA-Public Use
  Company Number: US-SANOFI-AVENTIS-2010SA000966

PATIENT
  Sex: Female
  Weight: 100 kg

DRUGS (18)
  1. PLAVIX [Suspect]
     Route: 048
     Dates: start: 20080306, end: 20080306
  2. PLAVIX [Suspect]
     Route: 048
     Dates: start: 20080306, end: 20080306
  3. PLACEBO [Suspect]
     Route: 051
     Dates: start: 20080306, end: 20080306
  4. PLACEBO [Suspect]
     Route: 051
     Dates: start: 20080306, end: 20080306
  5. BIVALIRUDIN [Concomitant]
     Dates: start: 20080306, end: 20080306
  6. ASPIRIN [Concomitant]
     Dates: start: 20080306, end: 20080306
  7. HEPARIN [Concomitant]
     Dates: start: 20080301, end: 20080301
  8. ALPRAZOLAM [Concomitant]
     Dates: start: 20080305, end: 20080306
  9. MIDAZOLAM HCL [Concomitant]
     Dates: start: 20080306, end: 20080306
  10. ACETAMINOPHEN W/ CODEINE [Concomitant]
     Dates: start: 20080306, end: 20080306
  11. LORAZEPAM [Concomitant]
     Dates: start: 20080305, end: 20080306
  12. NITROGLYCERIN ^SLOVAKOFARMA^ [Concomitant]
     Dates: start: 20080305, end: 20080306
  13. INSULIN [Concomitant]
     Dates: start: 20080305, end: 20080305
  14. FUROSEMIDE [Concomitant]
     Dates: start: 20080305, end: 20080306
  15. DIPHENHYDRAMINE [Concomitant]
     Dates: start: 20080306, end: 20080306
  16. METOPROLOL [Concomitant]
     Dates: start: 20080305, end: 20080306
  17. FENTANYL [Concomitant]
     Dates: start: 20080306, end: 20080306
  18. VALSARTAN [Concomitant]
     Dates: start: 20080305, end: 20080306

REACTIONS (1)
  - THROMBOSIS IN DEVICE [None]
